FAERS Safety Report 19292583 (Version 3)
Quarter: 2024Q1

REPORT INFORMATION
  Report Type: Spontaneous
  Country: US (occurrence: US)
  Receive Date: 20210524
  Receipt Date: 20240315
  Transmission Date: 20240409
  Serious: Yes (Hospitalization)
  Sender: FDA-Public Use
  Company Number: US-SECURA BIO, INC.-2021US001611

PATIENT
  Age: 73 Year
  Sex: Male

DRUGS (3)
  1. COPIKTRA [Suspect]
     Active Substance: DUVELISIB
     Indication: T-cell lymphoma
     Dosage: 50 MG, BID
     Route: 048
     Dates: start: 20210203
  2. COPIKTRA [Suspect]
     Active Substance: DUVELISIB
     Dosage: 25 MG, BID
     Route: 048
  3. COPIKTRA [Suspect]
     Active Substance: DUVELISIB
     Dosage: UNK

REACTIONS (4)
  - Diarrhoea [Unknown]
  - Hospitalisation [Unknown]
  - Taste disorder [Unknown]
  - Appetite disorder [Unknown]

NARRATIVE: CASE EVENT DATE: 20210517
